FAERS Safety Report 25323003 (Version 1)
Quarter: 2025Q2

REPORT INFORMATION
  Report Type: Spontaneous
  Country: FR (occurrence: FR)
  Receive Date: 20250516
  Receipt Date: 20250516
  Transmission Date: 20250717
  Serious: Yes (Other)
  Sender: CHEPLAPHARM
  Company Number: None

PATIENT
  Age: 88 Year
  Sex: Female

DRUGS (2)
  1. HYDROXYUREA [Suspect]
     Active Substance: HYDROXYUREA
     Indication: Essential thrombocythaemia
     Route: 048
     Dates: start: 202102
  2. ARANESP [Suspect]
     Active Substance: DARBEPOETIN ALFA
     Indication: Anaemia
     Dates: start: 202410

REACTIONS (5)
  - Myocardial infarction [Unknown]
  - Myocardial infarction [Unknown]
  - Thrombosis [Unknown]
  - Anaemia [Recovered/Resolved with Sequelae]
  - Arterial occlusive disease [Unknown]

NARRATIVE: CASE EVENT DATE: 20241001
